FAERS Safety Report 6469220-9 (Version None)
Quarter: 2009Q4

REPORT INFORMATION
  Report Type: 
  Country: None (occurrence: None)
  Receive Date: 20091203
  Receipt Date: 20071004
  Transmission Date: 20100525
  Serious: Yes (Life-Threatening, Hospitalization, Other)
  Sender: FDA-Public Use
  Company Number: CA-ELI_LILLY_AND_COMPANY-CA200709005065

PATIENT
  Age: 64 Year
  Sex: Male

DRUGS (20)
  1. FORTEO [Suspect]
     Indication: OSTEOPOROSIS
     Dosage: 20 UG, DAILY (1/D)
     Route: 058
     Dates: start: 20070201, end: 20070216
  2. FORTEO [Suspect]
     Dosage: 20 UG, DAILY (1/D)
     Route: 058
     Dates: start: 20070305, end: 20070327
  3. FORTEO [Suspect]
     Dosage: 20 UG, DAILY (1/D)
     Route: 058
     Dates: start: 20070621, end: 20070901
  4. PREDNISONE [Concomitant]
     Dosage: 20 MG, DAILY (1/D)
  5. FUROSEMIDE [Concomitant]
     Dosage: 40 MG, UNK
  6. REVASC [Concomitant]
  7. ASAPHEN [Concomitant]
     Dosage: 80 MG, UNK
  8. NOVO-GABAPENTIN [Concomitant]
     Dosage: 100 MG, 2/D
  9. CLONAZEPAM [Concomitant]
     Dosage: 5 MG, 2/D
  10. MIRTAZAPINE [Concomitant]
     Dosage: 30 MG, EACH EVENING
  11. APO-CITALOPRAM [Concomitant]
     Dosage: 20 MG, DAILY (1/D)
  12. CALCIUM CARBONATE [Concomitant]
     Dosage: 500 MG, UNK
  13. PANTOLOC                           /01263201/ [Concomitant]
     Dosage: 40 MG, UNK
  14. APO-METOCLOP [Concomitant]
     Dosage: 10 MG, 3/D
  15. GLUCONORM [Concomitant]
     Dosage: 0.5 MG, 3/D
  16. SINGULAIR [Concomitant]
     Dosage: 10 MG, EACH EVENING
  17. ZAROXOLYN [Concomitant]
     Dosage: 1.75 MG, DAILY (1/D)
  18. CENTRUM SILVER [Concomitant]
  19. COMBIVENT [Concomitant]
     Dosage: UNK, 4/D
     Route: 055
  20. VENTOLIN                                /SCH/ [Concomitant]
     Dosage: UNK, AS NEEDED
     Route: 055

REACTIONS (9)
  - ABDOMINAL INFECTION [None]
  - CARDIAC ARREST [None]
  - CARDIAC FAILURE [None]
  - CHILLS [None]
  - HAEMATOCHEZIA [None]
  - NAUSEA [None]
  - PNEUMONIA [None]
  - RESPIRATORY FAILURE [None]
  - VOMITING [None]
